FAERS Safety Report 4442215-2 (Version None)
Quarter: 2004Q3

REPORT INFORMATION
  Report Type: 
  Country: None (occurrence: None)
  Receive Date: 20040903
  Receipt Date: 20040428
  Transmission Date: 20050211
  Serious: Yes (Other)
  Sender: FDA-Public Use
  Company Number: 2004UW08663

PATIENT
  Age: 58 Year
  Sex: Female
  Weight: 99.7913 kg

DRUGS (15)
  1. CRESTOR [Suspect]
     Indication: BLOOD CHOLESTEROL
     Dosage: 10 MG QD PO
     Route: 048
     Dates: start: 20040330
  2. LIBRAX [Concomitant]
  3. LASIX [Concomitant]
  4. PREVACID [Concomitant]
  5. MOBIC [Concomitant]
  6. DIOVAN [Concomitant]
  7. WELLBUTRIN [Concomitant]
  8. AVANDIA [Concomitant]
  9. CELEXA [Concomitant]
  10. AMBIEN [Concomitant]
  11. CLONAZEPAM [Concomitant]
  12. GLUCOSAMINE [Concomitant]
  13. MULTIVITAMIN AND MINERAL SUPPLEMENT [Concomitant]
  14. MULTI-VITAMINS [Concomitant]
  15. JUICE PLUS [Concomitant]

REACTIONS (1)
  - ALOPECIA [None]
